FAERS Safety Report 5474384-X (Version None)
Quarter: 2007Q3

REPORT INFORMATION
  Report Type: 
  Country: None (occurrence: None)
  Receive Date: 20070904
  Receipt Date: 20070529
  Transmission Date: 20080115
  Serious: Yes (Hospitalization)
  Sender: FDA-Public Use
  Company Number: 154795USA

PATIENT
  Age: 78 Year
  Sex: Female
  Weight: 64.8644 kg

DRUGS (6)
  1. AZILECT [Suspect]
     Dosage: 0.5 MG (0.5 MG, 1 IN 1 D)
     Dates: start: 20070305, end: 20070403
  2. SINEMET [Concomitant]
  3. ALPRAZOLAM [Concomitant]
  4. TRAMADOL HCL [Concomitant]
  5. ARIPIPRAZOLE [Concomitant]
  6. NAPROXEN [Concomitant]

REACTIONS (4)
  - BLINDNESS [None]
  - CEREBROVASCULAR ACCIDENT [None]
  - DYSARTHRIA [None]
  - GAIT DISTURBANCE [None]
